FAERS Safety Report 20238563 (Version 1)
Quarter: 2021Q4

REPORT INFORMATION
  Report Type: Spontaneous
  Country: US (occurrence: US)
  Receive Date: 20211228
  Receipt Date: 20211228
  Transmission Date: 20220303
  Serious: Yes (Other)
  Sender: FDA-Public Use
  Company Number: US-PURDUE PHARMA-USA-2021-0253926

PATIENT
  Sex: Female

DRUGS (2)
  1. OXYCONTIN [Suspect]
     Active Substance: OXYCODONE HYDROCHLORIDE
     Indication: Product used for unknown indication
     Dosage: 10 MG, DAILY
     Route: 048
     Dates: start: 20210420
  2. CYMBALTA [Suspect]
     Active Substance: DULOXETINE HYDROCHLORIDE
     Indication: Burning sensation
     Dosage: UNK, DAILY
     Route: 048
     Dates: start: 20210420

REACTIONS (6)
  - Impaired driving ability [Recovered/Resolved]
  - Feeling hot [Recovered/Resolved]
  - Disorientation [Recovered/Resolved]
  - Rash [Not Recovered/Not Resolved]
  - Feeling abnormal [Recovered/Resolved]
  - Palpitations [Recovered/Resolved]

NARRATIVE: CASE EVENT DATE: 20210420
